FAERS Safety Report 9224577 (Version 1)
Quarter: 2013Q2

REPORT INFORMATION
  Report Type: Spontaneous
  Country: US (occurrence: None)
  Receive Date: 20130411
  Receipt Date: 20130411
  Transmission Date: 20140414
  Serious: Yes (Hospitalization)
  Sender: FDA-Public Use
  Company Number: None

PATIENT
  Age: 64 Year
  Sex: Male
  Weight: 120.45 kg

DRUGS (12)
  1. COUMADIN [Suspect]
     Indication: ATRIAL FIBRILLATION
     Dosage: 10MG  STWTHFS  PO?RECENTLY
     Route: 048
  2. COUMADIN [Suspect]
     Indication: ATRIAL FIBRILLATION
     Dosage: 5MG  MONDAYS  PO?RECENTLY
     Route: 048
  3. DOXAZOSIN [Concomitant]
  4. DULOXETINE [Concomitant]
  5. GEMFIBROZIL [Concomitant]
  6. LEVEMIR [Concomitant]
  7. HUMALOG [Concomitant]
  8. CLONIDINE [Concomitant]
  9. CARVEDILOL [Concomitant]
  10. AMLODIPINE [Concomitant]
  11. BUMEX [Concomitant]
  12. TIKOSNYN [Concomitant]

REACTIONS (6)
  - Syncope [None]
  - Loss of consciousness [None]
  - Subarachnoid haemorrhage [None]
  - Tremor [None]
  - Transfusion reaction [None]
  - International normalised ratio increased [None]
